FAERS Safety Report 11990924 (Version 1)
Quarter: 2016Q1

REPORT INFORMATION
  Report Type: Spontaneous
  Country: US (occurrence: US)
  Receive Date: 20160202
  Receipt Date: 20160202
  Transmission Date: 20160526
  Serious: No
  Sender: FDA-Public Use
  Company Number: PHHY2010US100259

PATIENT
  Age: 32 Year
  Sex: Female

DRUGS (2)
  1. ZOFRAN [Suspect]
     Active Substance: ONDANSETRON HYDROCHLORIDE
     Indication: HYPEREMESIS GRAVIDARUM
     Dosage: ?????
     Route: 065
  2. PROMETHAZINE [Concomitant]
     Active Substance: PROMETHAZINE\PROMETHAZINE HYDROCHLORIDE
     Indication: PRODUCT USED FOR UNKNOWN INDICATION
     Dosage: ?????
     Route: 065

REACTIONS (6)
  - Motion sickness [Unknown]
  - Nausea [Unknown]
  - Off label use [Unknown]
  - Impaired driving ability [Unknown]
  - Vomiting in pregnancy [Unknown]
  - Exposure during pregnancy [Unknown]
